FAERS Safety Report 9802239 (Version 2)
Quarter: 2014Q1

REPORT INFORMATION
  Report Type: Report from Study
  Country: DE (occurrence: DE)
  Receive Date: 20140107
  Receipt Date: 20140107
  Transmission Date: 20141002
  Serious: Yes (Hospitalization)
  Sender: FDA-Public Use
  Company Number: DE-BRISTOL-MYERS SQUIBB COMPANY-16375826

PATIENT
  Age: 50 Year
  Sex: Male

DRUGS (3)
  1. IPILIMUMAB [Suspect]
     Indication: MALIGNANT MELANOMA
     Dosage: 31JUL,20AUG,10SEP+1OCT09(976,971,960MG)14JAN,14APR,15JUL+7OCT10(980,950,955,970MG)13JAN11(965MG)
     Route: 042
     Dates: start: 20090731, end: 20110609
  2. TAMSULOSIN [Concomitant]
     Route: 048
     Dates: start: 20101115
  3. DUTASTERIDE [Concomitant]
     Route: 048
     Dates: start: 20110524

REACTIONS (1)
  - Cystitis noninfective [Recovered/Resolved with Sequelae]
